FAERS Safety Report 6054656-0 (Version None)
Quarter: 2009Q1

REPORT INFORMATION
  Report Type: 
  Country: None (occurrence: None)
  Receive Date: 20090128
  Receipt Date: 20090116
  Transmission Date: 20090719
  Serious: Yes (Death)
  Sender: FDA-Public Use
  Company Number: US-RANBAXY-2009RR-21080

PATIENT
  Age: 42 Year
  Sex: Female

DRUGS (3)
  1. DIAZEPAM [Suspect]
     Indication: COMPLETED SUICIDE
     Route: 048
  2. NORTRIPTYLINE HCL [Suspect]
     Indication: COMPLETED SUICIDE
     Route: 048
  3. DIPHENHYDRAMINE HCL [Suspect]
     Indication: COMPLETED SUICIDE
     Route: 048

REACTIONS (4)
  - CARDIAC ARREST [None]
  - COMPLETED SUICIDE [None]
  - INTENTIONAL DRUG MISUSE [None]
  - RESPIRATORY ARREST [None]
